FAERS Safety Report 16229175 (Version 1)
Quarter: 2019Q2

REPORT INFORMATION
  Report Type: Report from Study
  Country: CA (occurrence: CA)
  Receive Date: 20190423
  Receipt Date: 20190423
  Transmission Date: 20190711
  Serious: Yes (Hospitalization, Other)
  Sender: FDA-Public Use
  Company Number: CA-JNJFOC-20190130350

PATIENT
  Age: 58 Year
  Sex: Female
  Weight: 50 kg

DRUGS (2)
  1. STELARA [Suspect]
     Active Substance: USTEKINUMAB
     Indication: CROHN^S DISEASE
     Dosage: STRENGTH = 90 MG
     Route: 058
     Dates: start: 20180826
  2. PREDNISONE. [Suspect]
     Active Substance: PREDNISONE
     Indication: PRODUCT USED FOR UNKNOWN INDICATION
     Route: 065

REACTIONS (16)
  - Stoma complication [Unknown]
  - Proctalgia [Unknown]
  - Stoma site pain [Unknown]
  - Chills [Unknown]
  - Pyrexia [Unknown]
  - Psychotic disorder [Unknown]
  - Dyschezia [Unknown]
  - Colectomy [Unknown]
  - Rectal discharge [Unknown]
  - Fistula [Unknown]
  - Anal injury [Unknown]
  - Abdominal pain [Unknown]
  - General physical health deterioration [Unknown]
  - Rectal haemorrhage [Unknown]
  - Frequent bowel movements [Unknown]
  - Aphthous ulcer [Unknown]

NARRATIVE: CASE EVENT DATE: 2019
